FAERS Safety Report 9718226 (Version 1)
Quarter: 2013Q4

REPORT INFORMATION
  Report Type: Spontaneous
  Country: US (occurrence: US)
  Receive Date: 20131125
  Receipt Date: 20131125
  Transmission Date: 20140711
  Serious: No
  Sender: FDA-Public Use
  Company Number: US-VIVUS-2013V1000143

PATIENT
  Sex: Male
  Weight: 111.23 kg

DRUGS (6)
  1. QSYMIA 3.75MG/23MG [Suspect]
     Indication: WEIGHT DECREASED
     Dosage: DAILY DOSE: 1 CAPSULE,
     Route: 048
     Dates: start: 20130113, end: 201301
  2. QSYMIA 7.5MG/46MG [Suspect]
     Indication: WEIGHT DECREASED
     Dosage: DAILY DOSE: 1 CAPSULE,
     Route: 048
     Dates: start: 20130127, end: 20130227
  3. SIMVASTATIN [Concomitant]
     Indication: BLOOD CHOLESTEROL
     Route: 048
  4. ASACOL [Concomitant]
     Indication: COLITIS
     Route: 048
     Dates: start: 1994
  5. CIPROFLOXACIN [Concomitant]
     Indication: EPIDIDYMITIS
     Dates: start: 20130122
  6. ANTIBIOTIC [Concomitant]
     Indication: PROSTATITIS
     Dates: start: 20130224

REACTIONS (4)
  - Micturition urgency [Not Recovered/Not Resolved]
  - Urine flow decreased [Not Recovered/Not Resolved]
  - Dysgeusia [Not Recovered/Not Resolved]
  - Inappropriate schedule of drug administration [Recovered/Resolved]
